FAERS Safety Report 6892287-0 (Version None)
Quarter: 2010Q3

REPORT INFORMATION
  Report Type: 
  Country: None (occurrence: None)
  Receive Date: 20100731
  Receipt Date: 20080325
  Transmission Date: 20110219
  Serious: No
  Sender: FDA-Public Use
  Company Number: US-PFIZER INC-2008027922

PATIENT
  Age: 16 Year
  Sex: Female

DRUGS (1)
  1. CELONTIN [Suspect]
     Indication: CONVULSION
     Dates: start: 20080319

REACTIONS (6)
  - DIZZINESS [None]
  - LETHARGY [None]
  - MALAISE [None]
  - SOMNOLENCE [None]
  - VOMITING [None]
  - WRONG TECHNIQUE IN DRUG USAGE PROCESS [None]
